FAERS Safety Report 18574839 (Version 5)
Quarter: 2021Q1

REPORT INFORMATION
  Report Type: Report from Study
  Country: US (occurrence: US)
  Receive Date: 20201203
  Receipt Date: 20210111
  Transmission Date: 20210419
  Serious: Yes (Hospitalization)
  Sender: FDA-Public Use
  Company Number: NVSC2020US314752

PATIENT
  Age: 76 Year
  Sex: Male

DRUGS (3)
  1. ENTRESTO [Suspect]
     Active Substance: SACUBITRIL\VALSARTAN
     Indication: CARDIAC FAILURE
     Dosage: 1 DF, BID (24/26 MG)
     Route: 048
     Dates: start: 20201013
  2. FUROSEMIDE. [Suspect]
     Active Substance: FUROSEMIDE
     Indication: PRODUCT USED FOR UNKNOWN INDICATION
     Dosage: UNK (DOSAGE DOUBLED)
     Route: 065
     Dates: start: 20201114
  3. ENTRESTO [Suspect]
     Active Substance: SACUBITRIL\VALSARTAN
     Dosage: 1 DF, BID (97/103)
     Route: 048
     Dates: start: 202010

REACTIONS (8)
  - Dyspnoea [Recovering/Resolving]
  - Pericardial effusion [Recovering/Resolving]
  - Drug ineffective [Not Recovered/Not Resolved]
  - Malaise [Unknown]
  - Pollakiuria [Unknown]
  - Peripheral swelling [Recovering/Resolving]
  - Decreased appetite [Unknown]
  - Heart rate decreased [Unknown]

NARRATIVE: CASE EVENT DATE: 202010
